FAERS Safety Report 8504472-2 (Version None)
Quarter: 2012Q3

REPORT INFORMATION
  Report Type: 
  Country: None (occurrence: None)
  Receive Date: 20120711
  Receipt Date: 20120706
  Transmission Date: 20120928
  Serious: Yes (Death)
  Sender: FDA-Public Use
  Company Number: JP-PFIZER INC-2012149515

PATIENT
  Age: 62 Year
  Sex: Male

DRUGS (1)
  1. PIPERACILLIN AND TAZOBACTAM [Suspect]
     Dosage: 13.5 G, 1X/DAY
     Route: 041
     Dates: start: 20110827, end: 20110830

REACTIONS (1)
  - PLEURAL MESOTHELIOMA MALIGNANT [None]
